FAERS Safety Report 7788020-0 (Version None)
Quarter: 2011Q3

REPORT INFORMATION
  Report Type: 
  Country: None (occurrence: None)
  Receive Date: 20110927
  Receipt Date: 20110919
  Transmission Date: 20111222
  Serious: Yes (Hospitalization)
  Sender: FDA-Public Use
  Company Number: 1000024027

PATIENT
  Age: 43 Year
  Sex: Female

DRUGS (5)
  1. ESCITALOPRAM [Suspect]
     Indication: DEPRESSION
     Dosage: 20 MG (20 MG,1 IN 1 D),ORAL
     Route: 048
     Dates: start: 20110808
  2. LISINOPRIL [Concomitant]
  3. METOPROLOL SUCCINATE [Concomitant]
  4. LOVASTATIN (LOVASTATIN) (LOVASTATIN) [Concomitant]
  5. BENADRYL (DIPHENHYDRAMINE) (DIPHENHYDRAMINE) [Concomitant]

REACTIONS (2)
  - FALL [None]
  - GRAND MAL CONVULSION [None]
